FAERS Safety Report 22197958 (Version 1)
Quarter: 2023Q2

REPORT INFORMATION
  Report Type: Spontaneous
  Country: US (occurrence: None)
  Receive Date: 20230411
  Receipt Date: 20230411
  Transmission Date: 20230722
  Serious: Yes (Other)
  Sender: FDA-Public Use
  Company Number: None

PATIENT
  Age: 73 Year
  Sex: Female
  Weight: 92.08 kg

DRUGS (4)
  1. CEQUA [Suspect]
     Active Substance: CYCLOSPORINE
     Indication: Dry eye
     Dosage: FREQUENCY : 1 DROP OF CEQUA TWICE A DAY;?
     Dates: start: 20210104, end: 20220204
  2. Metoprolol ER Succinate [Concomitant]
  3. SPIRONOLACTONE [Concomitant]
  4. Roservastatin [Concomitant]

REACTIONS (2)
  - Urinary tract infection [None]
  - Pain [None]

NARRATIVE: CASE EVENT DATE: 20210204
